FAERS Safety Report 14103598 (Version 4)
Quarter: 2017Q4

REPORT INFORMATION
  Report Type: Report from Study
  Country: US (occurrence: US)
  Receive Date: 20171018
  Receipt Date: 20171221
  Transmission Date: 20180321
  Serious: Yes (Death, Hospitalization, Other)
  Sender: FDA-Public Use
  Company Number: US-EXELIXIS-CABO-17010871

PATIENT
  Age: 70 Year
  Sex: Male
  Weight: 74.9 kg

DRUGS (7)
  1. ENTECAVIR. [Concomitant]
     Active Substance: ENTECAVIR
  2. PROTONIX [Concomitant]
     Active Substance: PANTOPRAZOLE SODIUM
  3. IPILIMUMAB [Suspect]
     Active Substance: IPILIMUMAB
     Indication: HEPATOCELLULAR CARCINOMA
     Dosage: 81 MG, UNK
     Dates: start: 20170828, end: 20170828
  4. NIVOLUMAB [Suspect]
     Active Substance: NIVOLUMAB
     Indication: HEPATOCELLULAR CARCINOMA
     Dosage: 243 MG, UNK
     Dates: start: 20170828, end: 20170828
  5. PREDNISONE. [Concomitant]
     Active Substance: PREDNISONE
  6. CABOZANTINIB [Suspect]
     Active Substance: CABOZANTINIB
     Dosage: 40 MG, QD
     Route: 048
     Dates: start: 20170828, end: 20170910
  7. VITAMIN B-6 [Concomitant]
     Active Substance: PYRIDOXINE

REACTIONS (2)
  - Hepatic failure [Fatal]
  - Autoimmune hepatitis [Recovered/Resolved]

NARRATIVE: CASE EVENT DATE: 20170927
